FAERS Safety Report 9985444 (Version 1)
Quarter: 2014Q1

REPORT INFORMATION
  Report Type: Spontaneous
  Country: US (occurrence: US)
  Receive Date: 20140307
  Receipt Date: 20140307
  Transmission Date: 20141002
  Serious: No
  Sender: FDA-Public Use
  Company Number: US-GILEAD-2012-0053973

PATIENT
  Age: 49 Year
  Sex: Male

DRUGS (4)
  1. TRUVADA [Suspect]
     Indication: HIV INFECTION
     Dosage: UNK
     Dates: start: 201112
  2. ZIAGEN [Concomitant]
     Indication: HIV INFECTION
     Dosage: UNK
     Dates: start: 201112
  3. EPZICOM [Concomitant]
     Indication: HIV INFECTION
     Dosage: UNK
     Dates: end: 201111
  4. TDF [Concomitant]
     Indication: HIV INFECTION
     Dosage: UNK
     Dates: end: 201111

REACTIONS (1)
  - Parotid gland enlargement [Unknown]
